FAERS Safety Report 6683110-8 (Version None)
Quarter: 2010Q2

REPORT INFORMATION
  Report Type: 
  Country: None (occurrence: None)
  Receive Date: 20100415
  Receipt Date: 20100407
  Transmission Date: 20101027
  Serious: Yes (Hospitalization)
  Sender: FDA-Public Use
  Company Number: ES-MERCK-0911ESP00014

PATIENT
  Sex: Male

DRUGS (4)
  1. ISENTRESS [Suspect]
     Indication: HIV INFECTION
     Route: 048
     Dates: start: 20090101
  2. ABACAVIR SULFATE AND LAMIVUDINE [Concomitant]
     Indication: HIV INFECTION
     Route: 048
  3. DARUNAVIR [Concomitant]
     Indication: HIV INFECTION
     Route: 048
  4. HALOPERIDOL [Concomitant]
     Route: 065

REACTIONS (1)
  - PSYCHOMOTOR HYPERACTIVITY [None]
